FAERS Safety Report 7357651-4 (Version None)
Quarter: 2011Q1

REPORT INFORMATION
  Report Type: 
  Country: None (occurrence: None)
  Receive Date: 20110317
  Receipt Date: 20110309
  Transmission Date: 20110831
  Serious: Yes (Hospitalization, Other)
  Sender: FDA-Public Use
  Company Number: US-ELI_LILLY_AND_COMPANY-US201006001265

PATIENT
  Age: 74 Year
  Sex: Male

DRUGS (18)
  1. FORTEO [Suspect]
     Dosage: 20 UG, DAILY (1/D)
     Route: 065
     Dates: start: 20101001, end: 20101101
  2. CLONAZEPAM [Concomitant]
  3. ADVAIR DISKUS 100/50 [Concomitant]
  4. BYSTOLIC [Concomitant]
  5. CENTRUM [Concomitant]
  6. CYCLOBENZAPRINE [Concomitant]
  7. PROZAC [Concomitant]
  8. FORTEO [Suspect]
     Dosage: 20 UG, DAILY (1/D)
     Dates: start: 20110209
  9. FORTEO [Suspect]
     Indication: OSTEOPOROSIS
     Dosage: 20 UG, DAILY (1/D)
     Dates: start: 20091201, end: 20100101
  10. ANTIHYPERTENSIVES [Concomitant]
     Indication: HYPERTENSION
     Dosage: UNK, UNKNOWN
     Route: 065
  11. TRAZODONE [Concomitant]
  12. ASPIRIN [Concomitant]
  13. HYDROCODONE BITARTRATE [Concomitant]
  14. LASIX [Concomitant]
  15. PANTOPRAZOLE [Concomitant]
  16. CLONIDINE [Concomitant]
  17. DIURETICS [Concomitant]
     Dosage: UNK, UNKNOWN
     Route: 065
  18. FLOVENT HFA [Concomitant]

REACTIONS (8)
  - LIMB ASYMMETRY [None]
  - LOWER LIMB FRACTURE [None]
  - FALL [None]
  - ATROPHY [None]
  - HIP FRACTURE [None]
  - INTENTIONAL DRUG MISUSE [None]
  - SINUSITIS [None]
  - PAIN [None]
